FAERS Safety Report 5290486-5 (Version None)
Quarter: 2007Q2

REPORT INFORMATION
  Report Type: 
  Country: None (occurrence: None)
  Receive Date: 20070405
  Receipt Date: 20070405
  Transmission Date: 20071010
  Serious: Yes (Life-Threatening, Hospitalization)
  Sender: FDA-Public Use
  Company Number: None

PATIENT
  Age: 81 Year
  Sex: Male
  Weight: 86.637 kg

DRUGS (6)
  1. COUMADIN [Suspect]
     Indication: ATRIAL FIBRILLATION
     Dosage: 1.5MG AS DIRECTED ORALLY
     Route: 048
     Dates: start: 20051001, end: 20070301
  2. CYANOCOBALAMIN [Concomitant]
  3. LISINOPRIL [Concomitant]
  4. OMEPRAZOLE [Concomitant]
  5. SIMVASTATIN [Concomitant]
  6. NON-VA MULTIVITAMIN/MINERALS THERAPEUT CAP [Concomitant]

REACTIONS (6)
  - ASPIRATION [None]
  - CEREBRAL HAEMORRHAGE [None]
  - HEADACHE [None]
  - HYPOXIA [None]
  - NAUSEA [None]
  - VOMITING [None]
